FAERS Safety Report 17736331 (Version 2)
Quarter: 2020Q2

REPORT INFORMATION
  Report Type: Spontaneous
  Country: SK (occurrence: SK)
  Receive Date: 20200501
  Receipt Date: 20200513
  Transmission Date: 20200714
  Serious: Yes (Other)
  Sender: FDA-Public Use
  Company Number: SK-TAKEDA-2020TUS020875

PATIENT
  Age: 54 Year
  Sex: Male

DRUGS (6)
  1. CONDROSULF [Concomitant]
     Active Substance: SODIUM CHONDROITIN SULFATE
     Indication: ARTHRITIS
     Dosage: 800 MILLIGRAM, QD
     Route: 048
     Dates: start: 20200406
  2. REPARIL                            /00337201/ [Concomitant]
     Indication: ROTATOR CUFF SYNDROME
     Dosage: 20 MILLIGRAM, TID
     Route: 048
     Dates: start: 20200406, end: 20200427
  3. TORVACARD [Concomitant]
     Active Substance: ATORVASTATIN CALCIUM
     Indication: HYPERLIPIDAEMIA
     Dosage: 20 MILLIGRAM, QD
     Route: 048
     Dates: start: 1995
  4. PRENESSA [Concomitant]
     Active Substance: PERINDOPRIL
     Indication: HYPERTENSION
     Dosage: 4 MILLIGRAM, BID
     Route: 048
     Dates: start: 2016
  5. CORONAL                            /00802602/ [Concomitant]
     Indication: HYPERTENSION
     Dosage: 5 MILLIGRAM, QD
     Route: 048
     Dates: start: 2016
  6. ADENURIC [Suspect]
     Active Substance: FEBUXOSTAT
     Indication: GOUTY ARTHRITIS
     Dosage: 80 MILLIGRAM, QD
     Route: 048
     Dates: start: 20200406, end: 20200427

REACTIONS (6)
  - Pruritus [Recovering/Resolving]
  - Erectile dysfunction [Recovering/Resolving]
  - Rash [Recovering/Resolving]
  - Fatigue [Recovering/Resolving]
  - Alopecia [Recovering/Resolving]
  - Somnolence [Recovering/Resolving]

NARRATIVE: CASE EVENT DATE: 20200416
